FAERS Safety Report 8675331 (Version 4)
Quarter: 2012Q4

REPORT INFORMATION
  Report Type: 
  Country: US (occurrence: US)
  Receive Date: 20120720
  Receipt Date: 20121023
  Transmission Date: 20130627
  Serious: No
  Sender: FDA-Public Use
  Company Number: US-PFIZER INC-2006143339

PATIENT
  Age: 85 Year
  Sex: Male
  Weight: 77.11 kg

DRUGS (2)
  1. XALATAN [Suspect]
     Indication: GLAUCOMA
     Dosage: UNK
  2. LATANOPROST [Suspect]
     Dosage: UNK

REACTIONS (3)
  - Dry skin [Unknown]
  - Hair growth abnormal [Not Recovered/Not Resolved]
  - Blood testosterone increased [Unknown]
